FAERS Safety Report 10637819 (Version 1)
Quarter: 2014Q4

REPORT INFORMATION
  Report Type: Other
  Country: GB (occurrence: GB)
  Receive Date: 20141208
  Receipt Date: 20141208
  Transmission Date: 20150529
  Serious: Yes (Other)
  Sender: FDA-Public Use
  Company Number: GB-MYLANLABS-2014M1012043

PATIENT

DRUGS (5)
  1. MIRTAZAPINE. [Suspect]
     Active Substance: MIRTAZAPINE
     Dosage: 30 MG, UNK
  2. MIRTAZAPINE. [Suspect]
     Active Substance: MIRTAZAPINE
     Dosage: 15 MG, UNK
     Dates: start: 201306
  3. LORAZEPAM. [Concomitant]
     Active Substance: LORAZEPAM
     Dosage: UNK
     Dates: start: 201401
  4. CITALOPRAM [Concomitant]
     Active Substance: CITALOPRAM HYDROBROMIDE
     Dosage: UNK
  5. MIRTAZAPINE. [Suspect]
     Active Substance: MIRTAZAPINE
     Dosage: 45 MG, UNK
     Dates: end: 201403

REACTIONS (14)
  - Suicidal ideation [Unknown]
  - Pain in extremity [Unknown]
  - Restlessness [Unknown]
  - Psychomotor hyperactivity [Unknown]
  - Neck pain [Unknown]
  - Panic disorder [Unknown]
  - Lethargy [Unknown]
  - Anger [Unknown]
  - Stress [Unknown]
  - Cognitive disorder [Unknown]
  - Agitation [Unknown]
  - Drug interaction [Unknown]
  - Malaise [Unknown]
  - Anxiety [Unknown]
